FAERS Safety Report 25667838 (Version 2)
Quarter: 2025Q3

REPORT INFORMATION
  Report Type: Report from Study
  Country: US (occurrence: US)
  Receive Date: 20250812
  Receipt Date: 20250917
  Transmission Date: 20251021
  Serious: Yes (Other)
  Sender: ABBVIE
  Company Number: US-ABBVIE-6407105

PATIENT
  Age: 54 Year
  Sex: Male
  Weight: 95.254 kg

DRUGS (6)
  1. SKYRIZI [Suspect]
     Active Substance: RISANKIZUMAB-RZAA
     Indication: Psoriasis
     Route: 058
     Dates: start: 20250403, end: 202505
  2. SKYRIZI [Suspect]
     Active Substance: RISANKIZUMAB-RZAA
     Route: 058
     Dates: start: 202507
  3. OMEPRAZOLE [Concomitant]
     Active Substance: OMEPRAZOLE
     Indication: Dyspepsia
  4. SULFAMETHAZINE [Concomitant]
     Active Substance: SULFAMETHAZINE
     Indication: Sleep disorder
  5. CITALOPRAM [Concomitant]
     Active Substance: CITALOPRAM
     Indication: Anxiety
  6. AVASTIN [Concomitant]
     Active Substance: BEVACIZUMAB
     Indication: Blood cholesterol increased

REACTIONS (1)
  - Basal cell carcinoma [Recovered/Resolved]

NARRATIVE: CASE EVENT DATE: 20250701
